FAERS Safety Report 7573568-4 (Version None)
Quarter: 2011Q2

REPORT INFORMATION
  Report Type: 
  Country: None (occurrence: None)
  Receive Date: 20110627
  Receipt Date: 20110621
  Transmission Date: 20111010
  Serious: Yes (Hospitalization)
  Sender: FDA-Public Use
  Company Number: US-B.I. PHARMACEUTICALS,INC./RIDGEFIELD-2011-BP-15983BP

PATIENT
  Age: 95 Year
  Sex: Male

DRUGS (5)
  1. LISINOPRIL [Concomitant]
     Dosage: 2.5 MG
     Route: 048
     Dates: start: 20110216
  2. PRADAXA [Suspect]
     Dosage: 150 MG
     Dates: end: 20110509
  3. METOPROLOL TARTRATE [Concomitant]
     Dosage: 25 MG
     Route: 048
     Dates: start: 20101201
  4. LASIX [Concomitant]
     Dosage: 20 MG
     Route: 048
     Dates: start: 20100524
  5. LANOXIN [Concomitant]
     Dosage: 0.125 MG
     Route: 048
     Dates: start: 20110401

REACTIONS (1)
  - GASTROINTESTINAL HAEMORRHAGE [None]
